FAERS Safety Report 20355144 (Version 12)
Quarter: 2023Q1

REPORT INFORMATION
  Report Type: Spontaneous
  Country: FR (occurrence: FR)
  Receive Date: 20220120
  Receipt Date: 20230216
  Transmission Date: 20230418
  Serious: Yes (Hospitalization, Disabling, Other)
  Sender: FDA-Public Use
  Company Number: None

PATIENT

DRUGS (3)
  1. SUMATRIPTAN [Suspect]
     Active Substance: SUMATRIPTAN
     Indication: Cluster headache
     Dosage: 6 MG (AS NECESSARY)
     Route: 058
     Dates: start: 201706, end: 201708
  2. SUMATRIPTAN [Suspect]
     Active Substance: SUMATRIPTAN
     Indication: Migraine
  3. SUMATRIPTAN SUCCINATE [Suspect]
     Active Substance: SUMATRIPTAN SUCCINATE
     Indication: Cluster headache
     Dosage: 2 DF(INJECTION), QD, 6MG/0.5 ML
     Route: 058
     Dates: start: 20170801, end: 20171129

REACTIONS (63)
  - Peripheral ischaemia [Not Recovered/Not Resolved]
  - Pain [Unknown]
  - Skin necrosis [Unknown]
  - Chest pain [Unknown]
  - Lung neoplasm malignant [Unknown]
  - Adjustment disorder with depressed mood [Unknown]
  - Sensory loss [Unknown]
  - Peripheral vascular disorder [Unknown]
  - Limb discomfort [Unknown]
  - Raynaud^s phenomenon [Unknown]
  - Melaena [Unknown]
  - Peripheral arterial occlusive disease [Unknown]
  - Drug dependence [Unknown]
  - Thrombosis [Unknown]
  - Peripheral artery thrombosis [Unknown]
  - Arterial disorder [Unknown]
  - Demyelination [Unknown]
  - Mobility decreased [Unknown]
  - Exophthalmos [Unknown]
  - Cerebral small vessel ischaemic disease [Unknown]
  - Disability [Unknown]
  - Carpal tunnel syndrome [Unknown]
  - Acne [Unknown]
  - Trichiniasis [Unknown]
  - Pain in extremity [Unknown]
  - Pulse absent [Unknown]
  - Occult blood positive [Unknown]
  - Weight decreased [Unknown]
  - Arteritis [Unknown]
  - Cluster headache [Unknown]
  - Ergot poisoning [Unknown]
  - Hypoaesthesia [Unknown]
  - Skin ulcer [Unknown]
  - Atrophy [Unknown]
  - Myalgia [Unknown]
  - Obesity [Unknown]
  - Adrenal adenoma [Unknown]
  - Gastritis [Unknown]
  - Hiatus hernia [Unknown]
  - Tremor [Unknown]
  - Ligament sprain [Unknown]
  - Emphysema [Unknown]
  - Stress [Unknown]
  - Anxiety [Unknown]
  - Crying [Unknown]
  - Contusion [Unknown]
  - Cluster headache [Unknown]
  - Neck pain [Unknown]
  - Ischaemia [Not Recovered/Not Resolved]
  - Peripheral ischaemia [Unknown]
  - Cyanosis [Unknown]
  - Pain in extremity [Unknown]
  - Hepatic steatosis [Unknown]
  - Inflammation [Unknown]
  - Thromboangiitis obliterans [Unknown]
  - Neuralgia [Unknown]
  - Arterial disorder [Unknown]
  - Urethral necrosis [Unknown]
  - Sensory loss [Unknown]
  - Grip strength decreased [Unknown]
  - Nervous system disorder [Unknown]
  - Product prescribing error [Unknown]
  - Hospitalisation [Unknown]
